FAERS Safety Report 16970019 (Version 1)
Quarter: 2019Q4

REPORT INFORMATION
  Report Type: Spontaneous
  Country: US (occurrence: US)
  Receive Date: 20190911
  Receipt Date: 20190911
  Transmission Date: 20200122
  Serious: Yes (Death)
  Sender: FDA-Public Use
  Company Number: None

PATIENT
  Age: 79 Year
  Sex: Male

DRUGS (10)
  1. FLUCONAZOLE. [Concomitant]
     Active Substance: FLUCONAZOLE
  2. DOXYCYCLINE. [Concomitant]
     Active Substance: DOXYCYCLINE
  3. BUDESONIDE. [Concomitant]
     Active Substance: BUDESONIDE
  4. SSD CREAM [Concomitant]
     Active Substance: SILVER SULFADIAZINE
  5. TOBRAMYCIN 300MG/5ML [Suspect]
     Active Substance: TOBRAMYCIN
     Indication: BRONCHIECTASIS
     Dosage: ?          OTHER DOSE:300MG/5ML;OTHER ROUTE:ORAL NEBULIZED?
     Route: 055
     Dates: start: 20140205
  6. LEVAQUIN [Concomitant]
     Active Substance: LEVOFLOXACIN
  7. PREDNISONE. [Concomitant]
     Active Substance: PREDNISONE
  8. PENICILLINS [Concomitant]
     Active Substance: PENICILLIN
  9. BIAXIN [Concomitant]
     Active Substance: CLARITHROMYCIN
  10. PROAIR HFA [Concomitant]
     Active Substance: ALBUTEROL SULFATE

REACTIONS (1)
  - Death [None]

NARRATIVE: CASE EVENT DATE: 20190825
